FAERS Safety Report 4583526-X (Version None)
Quarter: 2005Q1

REPORT INFORMATION
  Report Type: 
  Country: None (occurrence: None)
  Receive Date: 20050211
  Receipt Date: 20050201
  Transmission Date: 20050727
  Serious: Yes (Death, Life-Threatening)
  Sender: FDA-Public Use
  Company Number: 2004096878

PATIENT
  Age: 73 Year
  Sex: Male

DRUGS (11)
  1. CEFPODOXIME PROXETIL [Suspect]
     Indication: ILL-DEFINED DISORDER
     Dosage: ORAL
     Route: 048
     Dates: start: 20040801, end: 20040814
  2. PREDNISONE [Suspect]
     Indication: ILL-DEFINED DISORDER
     Dosage: ORAL
     Route: 048
     Dates: start: 20040811, end: 20040814
  3. AMIKACIN [Suspect]
     Indication: ILL-DEFINED DISORDER
     Dates: start: 20040801, end: 20040810
  4. CEFTAZIDIME PENTAHYDRATE [Suspect]
     Indication: ILL-DEFINED DISORDER
     Dates: start: 20040801, end: 20040810
  5. OMEPRAZOLE [Suspect]
     Indication: ILL-DEFINED DISORDER
     Dosage: ORAL
     Route: 048
     Dates: start: 20040811, end: 20040814
  6. AMOXICILLIN TRIHYDRATE [Concomitant]
  7. MOMETASONE FUROATE [Concomitant]
  8. AMBROXOL HYDROCHLORIDE (AMBROXOL HYDROCHLORIDE) [Concomitant]
  9. AMLODIPINE BESYLATE [Concomitant]
  10. DIACEREIN (DIACEREIN) [Concomitant]
  11. GINKGO BILOBA EXTRACT (GINKGO BILOBA EXTRACT) [Concomitant]

REACTIONS (10)
  - ASTHENIA [None]
  - BILE DUCT CANCER [None]
  - BILIARY DILATATION [None]
  - EFFUSION [None]
  - HEPATIC FIBROSIS [None]
  - HEPATITIS CHOLESTATIC [None]
  - INSOMNIA [None]
  - LIVER DISORDER [None]
  - PRODUCTIVE COUGH [None]
  - PYREXIA [None]
